APPROVED DRUG PRODUCT: PAZOPANIB HYDROCHLORIDE
Active Ingredient: PAZOPANIB HYDROCHLORIDE
Strength: EQ 200MG BASE
Dosage Form/Route: TABLET;ORAL
Application: A218231 | Product #001 | TE Code: AB
Applicant: NOVUGEN ONCOLOGY SDN BHD
Approved: Apr 23, 2024 | RLD: No | RS: No | Type: RX